FAERS Safety Report 7675530 (Version 6)
Quarter: 2014Q1

REPORT INFORMATION
  Report Type: Spontaneous
  Country: US (occurrence: US)
  Receive Date: 20101119
  Receipt Date: 20140124
  Transmission Date: 20141002
  Serious: Yes (Hospitalization, Other)
  Sender: FDA-Public Use
  Company Number: US-BAYER-201041723NA

PATIENT
  Age: 18 Year
  Sex: Female
  Weight: 90.98 kg

DRUGS (7)
  1. YASMIN [Suspect]
     Dosage: UNK UNK, UNK
     Route: 048
     Dates: start: 20020520, end: 20090216
  2. OCELLA [Suspect]
     Dosage: UNK
     Dates: start: 20080714, end: 20090716
  3. CIPROFLOXACIN [Concomitant]
     Dosage: UNK
     Dates: start: 2008
  4. DICYCLOMINE [Concomitant]
     Dosage: UNK
     Dates: start: 2008
  5. DILAUDID [Concomitant]
     Dosage: UNK
     Dates: start: 20080117
  6. REGLAN [Concomitant]
     Dosage: UNK
     Dates: start: 20080117
  7. ALEVE [Concomitant]
     Indication: PAIN
     Dosage: UNK
     Dates: start: 20080117

REACTIONS (2)
  - Cholecystectomy [Unknown]
  - Cholecystitis chronic [None]
